FAERS Safety Report 4334161-X (Version None)
Quarter: 2004Q2

REPORT INFORMATION
  Report Type: 
  Country: None (occurrence: None)
  Receive Date: 20040402
  Receipt Date: 20040324
  Transmission Date: 20050107
  Serious: Yes (Death, Hospitalization)
  Sender: FDA-Public Use
  Company Number: 2004-03-1698

PATIENT
  Age: 34 Year
  Sex: Male
  Weight: 70 kg

DRUGS (6)
  1. PEG-INTRON [Suspect]
     Indication: HEPATITIS C
     Dosage: 120 MCG QWK INTRAMUSCULA
     Route: 030
     Dates: start: 20031001, end: 20031101
  2. REBETOL [Suspect]
     Indication: HEPATITIS C
     Dosage: ^100^ MG QD ORAL
     Route: 048
     Dates: start: 20031001, end: 20031101
  3. VIREAD [Suspect]
     Indication: HIV INFECTION
     Dosage: 80 MG QD ORAL
     Route: 048
     Dates: start: 20030301, end: 20031101
  4. ZERIT [Suspect]
     Indication: HIV INFECTION
     Dosage: 80 MG QD ORAL
     Route: 048
     Dates: start: 20030301, end: 20031101
  5. ZIAGEN [Suspect]
     Indication: HIV INFECTION
     Dosage: 600 MG QD ORAL
     Route: 048
     Dates: start: 20020301, end: 20031101
  6. METADON [Concomitant]

REACTIONS (3)
  - ABDOMINAL SEPSIS [None]
  - NEUTROPENIA [None]
  - THROMBOCYTOPENIA [None]
